FAERS Safety Report 5205266-6 (Version None)
Quarter: 2006Q4

REPORT INFORMATION
  Report Type: 
  Country: None (occurrence: None)
  Receive Date: 20061027
  Receipt Date: 20051011
  Transmission Date: 20070319
  Serious: Yes (Other)
  Sender: FDA-Public Use
  Company Number: HQWYE214117JUL04

PATIENT
  Age: 72 Year
  Sex: Female
  Weight: 69.01 kg

DRUGS (4)
  1. PREMARIN [Suspect]
     Dosage: 0.625 MG TABLET DAILY, ORAL
     Route: 048
     Dates: start: 19780101, end: 19970101
  2. AMTRIPTYLINE (AMITRIPTYLINE) [Concomitant]
  3. PROZAC [Concomitant]
  4. MAXZIDE [Concomitant]

REACTIONS (1)
  - BREAST CANCER [None]
